FAERS Safety Report 18528711 (Version 4)
Quarter: 2021Q1

REPORT INFORMATION
  Report Type: Spontaneous
  Country: US (occurrence: US)
  Receive Date: 20201120
  Receipt Date: 20210122
  Transmission Date: 20210419
  Serious: No
  Sender: FDA-Public Use
  Company Number: US-CELGENEUS-USA-20201103327

PATIENT
  Age: 57 Year
  Sex: Female

DRUGS (8)
  1. TYRAMINE [Concomitant]
     Active Substance: TYRAMINE
     Indication: PRODUCT USED FOR UNKNOWN INDICATION
     Route: 065
  2. REVLIMID [Suspect]
     Active Substance: LENALIDOMIDE
     Indication: PRODUCT USED FOR UNKNOWN INDICATION
     Route: 048
  3. PROBIOTIC [Concomitant]
     Active Substance: PROBIOTICS NOS
     Indication: MULTIPLE SCLEROSIS
     Route: 065
     Dates: start: 2012
  4. VIT D [Concomitant]
     Active Substance: VITAMIN D NOS
     Indication: MULTIPLE SCLEROSIS
     Dosage: 2000 IU (INTERNATIONAL UNIT)
     Route: 065
     Dates: start: 2000
  5. ZEPOSIA [Suspect]
     Active Substance: OZANIMOD HYDROCHLORIDE
     Indication: MULTIPLE SCLEROSIS
     Dosage: 0.95 MILLIGRAM
     Route: 048
     Dates: start: 20201028
  6. VITAMIN B COMPLEX [Concomitant]
     Active Substance: CYANOCOBALAMIN\DEXPANTHENOL\NIACINAMIDE\PYRIDOXINE HYDROCHLORIDE\RIBOFLAVIN 5^-PHOSPHATE SODIUM\THIAMINE HYDROCHLORIDE\VITAMIN B COMPLEX
     Indication: MULTIPLE SCLEROSIS
     Route: 065
     Dates: start: 2000
  7. PROZAC [Concomitant]
     Active Substance: FLUOXETINE HYDROCHLORIDE
     Indication: MULTIPLE SCLEROSIS
     Dosage: 2 MILLIGRAMS
     Route: 065
     Dates: start: 1997
  8. CALCIUM MAGNESIUM SULPHATE [Concomitant]
     Indication: MULTIPLE SCLEROSIS
     Route: 065
     Dates: start: 2010

REACTIONS (3)
  - Fatigue [Recovering/Resolving]
  - Chest discomfort [Recovered/Resolved]
  - Heart rate decreased [Recovering/Resolving]

NARRATIVE: CASE EVENT DATE: 20201028
